FAERS Safety Report 19100394 (Version 1)
Quarter: 2021Q2

REPORT INFORMATION
  Report Type: Spontaneous
  Country: US (occurrence: US)
  Receive Date: 20210407
  Receipt Date: 20210407
  Transmission Date: 20210717
  Serious: No
  Sender: FDA-Public Use
  Company Number: US-JNJFOC-20210342916

PATIENT
  Sex: Female

DRUGS (2)
  1. JANSSEN COVID?19 VACCINE [Suspect]
     Active Substance: AD26.COV2.S
     Indication: IMMUNISATION
     Route: 065
     Dates: start: 20210318, end: 20210318
  2. TYLENOL [Suspect]
     Active Substance: ACETAMINOPHEN
     Indication: VACCINATION COMPLICATION
     Route: 065
     Dates: start: 20210318

REACTIONS (3)
  - Headache [Unknown]
  - Vaccination complication [Unknown]
  - Ear pain [Unknown]

NARRATIVE: CASE EVENT DATE: 20210318
